FAERS Safety Report 22237868 (Version 1)
Quarter: 2023Q2

REPORT INFORMATION
  Report Type: Spontaneous
  Country: FR (occurrence: FR)
  Receive Date: 20230421
  Receipt Date: 20230421
  Transmission Date: 20230722
  Serious: Yes (Hospitalization, Other)
  Sender: FDA-Public Use
  Company Number: FR-PFIZER INC-202300159490

PATIENT
  Age: 78 Year
  Sex: Female
  Weight: 81 kg

DRUGS (3)
  1. RITUXIMAB [Suspect]
     Active Substance: RITUXIMAB
     Indication: Acquired haemophilia
     Dosage: UNK, WEEKLY (D1, D8, D15, D21)
     Dates: start: 20220718, end: 20220807
  2. BACTRIM [Suspect]
     Active Substance: SULFAMETHOXAZOLE\TRIMETHOPRIM
     Dosage: UNK
  3. CORTISONE [Concomitant]
     Active Substance: CORTISONE
     Indication: Acquired haemophilia
     Dosage: 1.5 MG/KG, DAILY

REACTIONS (5)
  - Colitis [Unknown]
  - Diarrhoea [Recovered/Resolved]
  - Haematoma [Unknown]
  - Toxicity to various agents [Unknown]
  - Off label use [Unknown]

NARRATIVE: CASE EVENT DATE: 20220719
